FAERS Safety Report 17271802 (Version 3)
Quarter: 2020Q1

REPORT INFORMATION
  Report Type: Spontaneous
  Country: US (occurrence: US)
  Receive Date: 20200115
  Receipt Date: 20200323
  Transmission Date: 20200409
  Serious: Yes (Other)
  Sender: FDA-Public Use
  Company Number: US-BAYER-2019-236835

PATIENT
  Age: 24 Year
  Sex: Female
  Weight: 90.25 kg

DRUGS (5)
  1. MIRENA [Suspect]
     Active Substance: LEVONORGESTREL
     Indication: CONTRACEPTION
     Dosage: 20 ?G PER DAY, CONTINUOUSLY
     Route: 015
     Dates: start: 20190923, end: 20200110
  2. ZOFRAN [Concomitant]
     Active Substance: ONDANSETRON HYDROCHLORIDE
     Dosage: UNK
     Route: 048
     Dates: start: 20190502
  3. MACROBID [CLARITHROMYCIN] [Concomitant]
     Active Substance: CLARITHROMYCIN
     Dosage: 1 DF, BID
     Route: 048
     Dates: start: 20181120
  4. PHENAZOPYRIDINE. [Concomitant]
     Active Substance: PHENAZOPYRIDINE
     Dosage: 1 DF, TID
     Route: 048
     Dates: start: 20190405
  5. HYDROXYCHLOROQUINE [Concomitant]
     Active Substance: HYDROXYCHLOROQUINE
     Route: 048

REACTIONS (9)
  - Medical device pain [Recovered/Resolved]
  - Abnormal withdrawal bleeding [Recovered/Resolved]
  - Embedded device [Recovered/Resolved]
  - Dysmenorrhoea [Recovered/Resolved]
  - Dyspareunia [Recovered/Resolved]
  - Pelvic pain [Recovered/Resolved]
  - Contraindicated device used [None]
  - Abdominal pain [Recovered/Resolved]
  - Metrorrhagia [Recovered/Resolved]

NARRATIVE: CASE EVENT DATE: 2019
